FAERS Safety Report 14229622 (Version 1)
Quarter: 2017Q4

REPORT INFORMATION
  Report Type: Spontaneous
  Country: US (occurrence: None)
  Receive Date: 20171128
  Receipt Date: 20171128
  Transmission Date: 20180321
  Serious: Yes (Death)
  Sender: FDA-Public Use
  Company Number: None

PATIENT
  Age: 6 Month
  Sex: Male

DRUGS (3)
  1. SYNAGIS [Suspect]
     Active Substance: PALIVIZUMAB
  2. LEVALBUTEROL. [Concomitant]
     Active Substance: LEVALBUTEROL
  3. BUDOSINIDE [Concomitant]

REACTIONS (3)
  - Pericardial effusion [None]
  - Respiratory failure [None]
  - Kidney enlargement [None]

NARRATIVE: CASE EVENT DATE: 20110108
